FAERS Safety Report 8423692-9 (Version None)
Quarter: 2012Q2

REPORT INFORMATION
  Report Type: 
  Country: None (occurrence: None)
  Receive Date: 20120608
  Receipt Date: 20111024
  Transmission Date: 20120825
  Serious: No
  Sender: FDA-Public Use
  Company Number: US-ASTRAZENECA-2011SE54240

PATIENT
  Age: 66 Year
  Sex: Female

DRUGS (2)
  1. ATACAND [Suspect]
     Route: 048
  2. ATACAND HCT [Suspect]
     Route: 048

REACTIONS (2)
  - PNEUMONIA [None]
  - HYPERSENSITIVITY [None]
